FAERS Safety Report 19067326 (Version 1)
Quarter: 2021Q1

REPORT INFORMATION
  Report Type: Spontaneous
  Country: FR (occurrence: FR)
  Receive Date: 20210329
  Receipt Date: 20210329
  Transmission Date: 20210420
  Serious: Yes (Other)
  Sender: FDA-Public Use
  Company Number: FR-AUROBINDO-AUR-APL-2021-012211

PATIENT
  Age: 86 Year
  Sex: Male
  Weight: 100 kg

DRUGS (11)
  1. FUMAFER [Concomitant]
     Active Substance: FERROUS FUMARATE
     Indication: MINERAL SUPPLEMENTATION
     Dosage: 1 DOSAGE FORM, ONCE A DAY
     Route: 048
     Dates: start: 20210212, end: 20210212
  2. ALPRAZOLAM. [Suspect]
     Active Substance: ALPRAZOLAM
     Indication: ANXIETY
     Dosage: 0.5 MILLIGRAM, ONCE A DAY
     Route: 048
     Dates: start: 20210211, end: 20210212
  3. ALLOPURINOL. [Concomitant]
     Active Substance: ALLOPURINOL
     Indication: GOUT
     Dosage: 100 MILLIGRAM, ONCE A DAY
     Route: 048
     Dates: start: 20210211, end: 20210212
  4. CEFTRIAXONE. [Concomitant]
     Active Substance: CEFTRIAXONE
     Indication: INFECTION
     Dosage: 1 GRAM, ONCE A DAY
     Route: 042
     Dates: start: 20210212
  5. MORPHINE [Suspect]
     Active Substance: MORPHINE
     Indication: PAIN
     Dosage: 1 MILLIGRAM, EVERY HOUR
     Route: 042
     Dates: start: 20210212, end: 20210213
  6. FUROSEMIDE. [Concomitant]
     Active Substance: FUROSEMIDE
     Indication: HYPERTENSION
     Dosage: 500 MILLIGRAM, ONCE A DAY
     Route: 048
     Dates: start: 20210212, end: 20210212
  7. TRAMADOL. [Suspect]
     Active Substance: TRAMADOL
     Indication: PAIN
     Dosage: 150 MILLIGRAM, ONCE A DAY
     Route: 048
     Dates: start: 20210211, end: 20210212
  8. ABASAGLAR [Concomitant]
     Active Substance: INSULIN GLARGINE
     Indication: PRODUCT USED FOR UNKNOWN INDICATION
     Dosage: 20 INTERNATIONAL UNIT 1 TOTAL
     Route: 058
     Dates: start: 20210212, end: 20210212
  9. MIANSERINE [Concomitant]
     Active Substance: MIANSERIN HYDROCHLORIDE
     Indication: MIXED ANXIETY AND DEPRESSIVE DISORDER
     Dosage: 30 MILLIGRAM, ONCE A DAY
     Route: 048
     Dates: start: 20210211, end: 20210211
  10. PANTOPRAZOLE [Concomitant]
     Active Substance: PANTOPRAZOLE
     Indication: PRODUCT USED FOR UNKNOWN INDICATION
     Dosage: 80 MILLIGRAM, ONCE A DAY
     Route: 042
     Dates: start: 20210211
  11. LEVOTHYROXINE. [Concomitant]
     Active Substance: LEVOTHYROXINE
     Indication: HYPOTHYROIDISM
     Dosage: 1 DOSAGE FORM, ONCE A DAY
     Route: 048
     Dates: start: 20210212, end: 20210212

REACTIONS (2)
  - Dependence on oxygen therapy [Recovered/Resolved]
  - Coma [Recovered/Resolved]

NARRATIVE: CASE EVENT DATE: 20210213
